FAERS Safety Report 10523895 (Version 1)
Quarter: 2014Q4

REPORT INFORMATION
  Report Type: Report from Study
  Country: IT (occurrence: IT)
  Receive Date: 20141017
  Receipt Date: 20141017
  Transmission Date: 20150528
  Serious: Yes (Congenital Anomaly)
  Sender: FDA-Public Use
  Company Number: IT-UCBSA-2014014808

PATIENT

DRUGS (1)
  1. LEVETIRACETAM. [Suspect]
     Active Substance: LEVETIRACETAM
     Indication: EPILEPSY
     Dosage: DAILY DOSE: 1500 (UNITS UNSPECIFIED)
     Route: 064
     Dates: start: 2011, end: 201201

REACTIONS (2)
  - Foetal exposure during pregnancy [Unknown]
  - Ventricular septal defect [Unknown]

NARRATIVE: CASE EVENT DATE: 2011
